FAERS Safety Report 10573019 (Version 1)
Quarter: 2014Q4

REPORT INFORMATION
  Report Type: Spontaneous
  Country: US (occurrence: None)
  Receive Date: 20141107
  Receipt Date: 20141107
  Transmission Date: 20150529
  Serious: Yes (Life-Threatening, Hospitalization, Disabling, Other)
  Sender: FDA-Public Use
  Company Number: None

PATIENT
  Age: 30 Year
  Sex: Female
  Weight: 169 kg

DRUGS (2)
  1. LATUDA [Suspect]
     Active Substance: LURASIDONE HYDROCHLORIDE
     Indication: HALLUCINATION, AUDITORY
     Dosage: TAKEN BY MOUTH
     Dates: start: 20141013, end: 20141018
  2. LATUDA [Suspect]
     Active Substance: LURASIDONE HYDROCHLORIDE
     Indication: ANXIETY
     Dosage: TAKEN BY MOUTH
     Dates: start: 20141013, end: 20141018

REACTIONS (7)
  - Palpitations [None]
  - Unevaluable event [None]
  - Paranoia [None]
  - Loose associations [None]
  - Chest pain [None]
  - Withdrawal syndrome [None]
  - Aggression [None]

NARRATIVE: CASE EVENT DATE: 20141013
